FAERS Safety Report 17271244 (Version 1)
Quarter: 2020Q1

REPORT INFORMATION
  Report Type: Spontaneous
  Country: US (occurrence: US)
  Receive Date: 20200115
  Receipt Date: 20200115
  Transmission Date: 20200409
  Serious: No
  Sender: FDA-Public Use
  Company Number: US-ASTRAZENECA-2019SF30335

PATIENT
  Age: 18086 Day
  Sex: Male
  Weight: 133.4 kg

DRUGS (1)
  1. BYDUREON [Suspect]
     Active Substance: EXENATIDE
     Indication: TYPE 2 DIABETES MELLITUS
     Dosage: 2 MG/0.65 ML ONCE A WEEK
     Route: 058
     Dates: start: 20180114

REACTIONS (4)
  - Injection site nodule [Recovered/Resolved]
  - Wrong technique in product usage process [Unknown]
  - Injection site pain [Recovered/Resolved]
  - Device leakage [Unknown]

NARRATIVE: CASE EVENT DATE: 20181025
